FAERS Safety Report 15944874 (Version 7)
Quarter: 2022Q2

REPORT INFORMATION
  Report Type: Report from Study
  Country: US (occurrence: US)
  Receive Date: 20190211
  Receipt Date: 20220620
  Transmission Date: 20220721
  Serious: Yes (Hospitalization, Other)
  Sender: FDA-Public Use
  Company Number: US-ACADIA PHARMACEUTICALS INC.-ACA-2018-011289

PATIENT
  Age: 56 Year
  Sex: Male

DRUGS (20)
  1. NUPLAZID [Suspect]
     Active Substance: PIMAVANSERIN TARTRATE
     Indication: Parkinson^s disease
     Dosage: 34 MG, QD
     Route: 048
     Dates: start: 2018, end: 201812
  2. NUPLAZID [Suspect]
     Active Substance: PIMAVANSERIN TARTRATE
     Indication: Hallucination
     Dosage: 34 MG, QD
     Route: 048
     Dates: start: 201812
  3. NUPLAZID [Suspect]
     Active Substance: PIMAVANSERIN TARTRATE
     Indication: Delusion
  4. TRULICITY [Concomitant]
     Active Substance: DULAGLUTIDE
     Dosage: 4.5MG/0.5ML
  5. CARBIDOPA\LEVODOPA [Concomitant]
     Active Substance: CARBIDOPA\LEVODOPA
     Dosage: 25-250MG
  6. CLONAZEPAM [Concomitant]
     Active Substance: CLONAZEPAM
     Dosage: 0.5MG
  7. CLOPIDOGREL [Concomitant]
     Active Substance: CLOPIDOGREL BISULFATE
     Dosage: 75 MILLIGRAM
  8. DEXILANT [Concomitant]
     Active Substance: DEXLANSOPRAZOLE
     Dosage: 60 MILLIGRAM
  9. DICYCLOMINE [Concomitant]
     Active Substance: DICYCLOMINE HYDROCHLORIDE
     Dosage: 10 MILLIGRAM
  10. DILANTIN [Concomitant]
     Active Substance: PHENYTOIN
     Dosage: 100 MILLIGRAM
  11. DIVALPROEX SODIUM [Concomitant]
     Active Substance: DIVALPROEX SODIUM
     Dosage: 500 MILLIGRAM
  12. DULOXETINE HYDROCHLORIDE [Concomitant]
     Active Substance: DULOXETINE HYDROCHLORIDE
     Dosage: 30 MILLIGRAM
  13. GEMFIBROZIL [Concomitant]
     Active Substance: GEMFIBROZIL
     Dosage: 600 MILLIGRAM
  14. LEVETIRACETAM [Concomitant]
     Active Substance: LEVETIRACETAM
     Dosage: 1000 GRAM
  15. LYRICA [Concomitant]
     Active Substance: PREGABALIN
     Dosage: 100 MILLIGRAM
  16. OMEPRAZOLE [Concomitant]
     Active Substance: OMEPRAZOLE
     Dosage: 40 MILLIGRAM
  17. ONDANSETRON [Concomitant]
     Active Substance: ONDANSETRON
     Dosage: 8 MILLIGRAM
  18. PROPRANOLOL [Concomitant]
     Active Substance: PROPRANOLOL HYDROCHLORIDE
     Dosage: 40 MILLIGRAM
  19. SIMVASTATIN [Concomitant]
     Active Substance: SIMVASTATIN
     Dosage: 20 MILLIGRAM
  20. SUCRALFATE [Concomitant]
     Active Substance: SUCRALFATE
     Dosage: 1 GRAM

REACTIONS (14)
  - Hypoglycaemia [Unknown]
  - Type 2 diabetes mellitus [Unknown]
  - Seizure [Unknown]
  - Pneumonia [Unknown]
  - Gastrointestinal stromal tumour [Unknown]
  - Gastritis erosive [Unknown]
  - Blood glucose increased [Not Recovered/Not Resolved]
  - Product dose omission issue [Recovered/Resolved]
  - Skin exfoliation [Unknown]
  - Sleep disorder [Unknown]
  - Depression [Unknown]
  - Hallucination [Unknown]
  - Hallucination, visual [Unknown]
  - Hallucination [Unknown]

NARRATIVE: CASE EVENT DATE: 20181201
